FAERS Safety Report 7917412-1 (Version None)
Quarter: 2011Q4

REPORT INFORMATION
  Report Type: 
  Country: None (occurrence: None)
  Receive Date: 20111116
  Receipt Date: 20111108
  Transmission Date: 20120403
  Serious: Yes (Hospitalization)
  Sender: FDA-Public Use
  Company Number: FR-PFIZER INC-2011272530

PATIENT
  Age: 61 Year
  Sex: Female

DRUGS (2)
  1. MEDROL [Suspect]
     Dosage: 2 TABLETS DAILY
     Dates: start: 20100405, end: 20100531
  2. TRILEPTAL [Suspect]
     Dosage: UNK
     Route: 048
     Dates: start: 20100405, end: 20100531

REACTIONS (3)
  - RENAL FAILURE [None]
  - GENERAL PHYSICAL HEALTH DETERIORATION [None]
  - DRUG RASH WITH EOSINOPHILIA AND SYSTEMIC SYMPTOMS [None]
